FAERS Safety Report 25318608 (Version 1)
Quarter: 2025Q2

REPORT INFORMATION
  Report Type: Spontaneous
  Country: ES (occurrence: ES)
  Receive Date: 20250515
  Receipt Date: 20250515
  Transmission Date: 20250716
  Serious: Yes (Congenital Anomaly, Other)
  Sender: AUROBINDO
  Company Number: ES-AUROBINDO-AUR-APL-2025-024278

PATIENT
  Age: 29 Week
  Sex: Male
  Weight: 1.24 kg

DRUGS (1)
  1. ACETAMINOPHEN [Suspect]
     Active Substance: ACETAMINOPHEN
     Indication: Odynophagia
     Route: 064

REACTIONS (3)
  - Foetal exposure during pregnancy [Unknown]
  - Aplasia cutis congenita [Unknown]
  - Premature baby [Unknown]
